FAERS Safety Report 11513962 (Version 2)
Quarter: 2015Q3

REPORT INFORMATION
  Report Type: Spontaneous
  Country: US (occurrence: US)
  Receive Date: 20150916
  Receipt Date: 20150928
  Transmission Date: 20151125
  Serious: No
  Sender: FDA-Public Use
  Company Number: US-PFIZER INC-2015305653

PATIENT
  Age: 47 Year
  Sex: Female
  Weight: 54 kg

DRUGS (7)
  1. IBUPROFEN. [Concomitant]
     Active Substance: IBUPROFEN
     Dosage: 200 MG, 1X/DAY
  2. LORTAB [Concomitant]
     Active Substance: ACETAMINOPHEN\HYDROCODONE BITARTRATE
     Dosage: UNK (10-325MG AND TAKES FOR SURE TWICE A DAY AND SOMETIMES 4 TIMES A DAY)
     Dates: start: 201406
  3. CELEBREX [Suspect]
     Active Substance: CELECOXIB
     Indication: ARTHRITIS
     Dosage: 400 MG, 2X/DAY (200MG CAPSULES-2 CAPSULES A DAY BY MOUTH)
     Route: 048
     Dates: start: 2012
  4. KLONOPIN [Concomitant]
     Active Substance: CLONAZEPAM
     Indication: ANXIETY
     Dosage: 0.5 MG, 1X/DAY
  5. PHENERGAN [Concomitant]
     Active Substance: PROMETHAZINE HYDROCHLORIDE
     Dosage: UNK (25MG PILL AND TAKE A HALF A PILL)
  6. TIZANIDINE. [Concomitant]
     Active Substance: TIZANIDINE
     Indication: BACK INJURY
     Dosage: UNK MG, UNK (4MG TABLET, SHE TAKES 1 1/2 TABLET A DAY)
  7. XANAX [Concomitant]
     Active Substance: ALPRAZOLAM
     Indication: ANXIETY
     Dosage: 1 MG, AS NEEDED (EVERY 4 HOURS OR AS NEEDED)

REACTIONS (4)
  - Sciatica [Not Recovered/Not Resolved]
  - Pain in extremity [Not Recovered/Not Resolved]
  - Tendon injury [Not Recovered/Not Resolved]
  - Back injury [Not Recovered/Not Resolved]

NARRATIVE: CASE EVENT DATE: 201406
